FAERS Safety Report 18078277 (Version 1)
Quarter: 2020Q3

REPORT INFORMATION
  Report Type: Spontaneous
  Country: US (occurrence: US)
  Receive Date: 20200727
  Receipt Date: 20200727
  Transmission Date: 20201103
  Serious: Yes (Hospitalization)
  Sender: FDA-Public Use
  Company Number: None

PATIENT
  Age: 34 Year
  Sex: Male
  Weight: 115.6 kg

DRUGS (3)
  1. REMDESIVIR. [Suspect]
     Active Substance: REMDESIVIR
     Indication: COVID-19
     Route: 040
     Dates: start: 20200722, end: 20200723
  2. IV PIPERACILLIN?TAZOBACTAM [Concomitant]
     Dates: start: 20200721, end: 20200727
  3. IV VANCOMYCIN [Concomitant]
     Active Substance: VANCOMYCIN
     Dates: start: 20200721, end: 20200725

REACTIONS (1)
  - Renal failure [None]

NARRATIVE: CASE EVENT DATE: 20200724
